FAERS Safety Report 6196205-2 (Version None)
Quarter: 2009Q2

REPORT INFORMATION
  Report Type: 
  Country: None (occurrence: None)
  Receive Date: 20090520
  Receipt Date: 20090505
  Transmission Date: 20091009
  Serious: Yes (Other)
  Sender: FDA-Public Use
  Company Number: US-AVENTIS-200817703US

PATIENT
  Sex: Male
  Weight: 83.91 kg

DRUGS (2)
  1. KETEK [Suspect]
     Indication: ACUTE SINUSITIS
     Dates: start: 20070604
  2. AUGMENTIN '125' [Concomitant]

REACTIONS (15)
  - AMNESIA [None]
  - ASPARTATE AMINOTRANSFERASE INCREASED [None]
  - CONFUSIONAL STATE [None]
  - DEPRESSED LEVEL OF CONSCIOUSNESS [None]
  - DISORIENTATION [None]
  - DISTURBANCE IN ATTENTION [None]
  - DIZZINESS [None]
  - FATIGUE [None]
  - HALLUCINATION [None]
  - HEPATITIS [None]
  - HYPOKALAEMIA [None]
  - HYPONATRAEMIA [None]
  - JAUNDICE [None]
  - LISTLESS [None]
  - THINKING ABNORMAL [None]
